FAERS Safety Report 9776281 (Version 3)
Quarter: 2013Q4

REPORT INFORMATION
  Report Type: Report from Study
  Country: US (occurrence: US)
  Receive Date: 20131220
  Receipt Date: 20131227
  Transmission Date: 20140711
  Serious: Yes (Hospitalization, Other)
  Sender: FDA-Public Use
  Company Number: US-TEVA-450656USA

PATIENT
  Age: 65 Year
  Sex: Male
  Weight: 67 kg

DRUGS (7)
  1. BENDAMUSTINE [Suspect]
     Indication: CHRONIC LYMPHOCYTIC LEUKAEMIA
     Route: 042
     Dates: start: 20130516
  2. BENDAMUSTINE [Suspect]
     Route: 042
     Dates: start: 20131003
  3. RITUXIMAB [Suspect]
     Indication: CHRONIC LYMPHOCYTIC LEUKAEMIA
     Route: 042
     Dates: start: 20130515
  4. RITUXIMAB [Suspect]
     Route: 042
     Dates: start: 20131002
  5. IBRUTINIB/PLACEBO [Suspect]
     Indication: CHRONIC LYMPHOCYTIC LEUKAEMIA
     Route: 048
     Dates: start: 20130516, end: 20131127
  6. ASPIRIN [Concomitant]
     Indication: GASTROOESOPHAGEAL REFLUX DISEASE
     Dosage: DAILY
  7. OMEPRAZOLE [Concomitant]
     Indication: GASTROOESOPHAGEAL REFLUX DISEASE
     Dosage: TWICE DAILY

REACTIONS (3)
  - Pneumothorax [Recovered/Resolved]
  - Delirium [Recovered/Resolved]
  - Loss of consciousness [Recovered/Resolved]
